FAERS Safety Report 16465218 (Version 1)
Quarter: 2019Q2

REPORT INFORMATION
  Report Type: Spontaneous
  Country: US (occurrence: US)
  Receive Date: 20190621
  Receipt Date: 20190621
  Transmission Date: 20190711
  Serious: Yes (Other)
  Sender: FDA-Public Use
  Company Number: US-COOPERSURGICAL, INC.-US-2019CPS001876

PATIENT
  Age: 25 Year
  Sex: Female
  Weight: 60.32 kg

DRUGS (1)
  1. PARAGARD T 380A [Suspect]
     Active Substance: COPPER
     Indication: PRODUCT USED FOR UNKNOWN INDICATION
     Dosage: UNK
     Route: 015
     Dates: start: 20160531, end: 20190613

REACTIONS (5)
  - Complication of device removal [Not Recovered/Not Resolved]
  - Device breakage [Not Recovered/Not Resolved]
  - Device material issue [Not Recovered/Not Resolved]
  - Device expulsion [Recovered/Resolved]
  - Foreign body in reproductive tract [Not Recovered/Not Resolved]

NARRATIVE: CASE EVENT DATE: 20190613
